FAERS Safety Report 7980785-8 (Version None)
Quarter: 2011Q4

REPORT INFORMATION
  Report Type: 
  Country: None (occurrence: None)
  Receive Date: 20111214
  Receipt Date: 20111130
  Transmission Date: 20120403
  Serious: Yes (Hospitalization, Other)
  Sender: FDA-Public Use
  Company Number: DE-BAUSCH-2011BL008025

PATIENT
  Age: 28 Year
  Sex: Female
  Weight: 48 kg

DRUGS (3)
  1. BORO-SCOPOL N AUGENTROPFEN [Suspect]
     Indication: OPTIC NEURITIS
     Route: 047
     Dates: start: 20111104, end: 20111107
  2. ATROPINE [Suspect]
     Indication: PUPILLARY DISORDER
     Route: 047
     Dates: end: 20111104
  3. ATROPINE [Suspect]
     Indication: OPTIC NEURITIS
     Route: 047
     Dates: end: 20111104

REACTIONS (9)
  - STUPOR [None]
  - DISORIENTATION [None]
  - CONFUSIONAL STATE [None]
  - CIRCULATORY COLLAPSE [None]
  - HEARING IMPAIRED [None]
  - DRUG EFFECT PROLONGED [None]
  - DYSPNOEA [None]
  - HALLUCINATION [None]
  - MUSCULAR WEAKNESS [None]
